FAERS Safety Report 8766669 (Version 1)
Quarter: 2012Q4

REPORT INFORMATION
  Report Type: 
  Country: US (occurrence: US)
  Receive Date: 20120904
  Receipt Date: 20120904
  Transmission Date: 20130627
  Serious: Yes (Hospitalization)
  Sender: FDA-Public Use
  Company Number: US-BAYER-2012-090640

PATIENT
  Age: 50 Year
  Sex: Female

DRUGS (5)
  1. YAZ [Suspect]
  2. XANAX XR [Concomitant]
     Dosage: 1 mg, UNK
  3. WELLBUTRIN [Concomitant]
     Dosage: 300 mg, daily
  4. MUCINEX [Concomitant]
  5. NASONEX [Concomitant]
     Route: 045

REACTIONS (2)
  - Pulmonary embolism [None]
  - Deep vein thrombosis [Recovered/Resolved]
